FAERS Safety Report 5056180-0 (Version None)
Quarter: 2006Q3

REPORT INFORMATION
  Report Type: 
  Country: None (occurrence: None)
  Receive Date: 20060714
  Receipt Date: 20060626
  Transmission Date: 20061208
  Serious: Yes (Hospitalization)
  Sender: FDA-Public Use
  Company Number: USA0510110132

PATIENT
  Age: 56 Year
  Sex: Female

DRUGS (7)
  1. FORTEO [Suspect]
     Indication: OSTEOPOROSIS
     Dates: start: 20041201
  2. TENORMIN [Concomitant]
  3. SYNTHROID [Concomitant]
  4. EASPRIN (ACETYLSALICYLIC ACID) [Concomitant]
  5. PLAVIX [Concomitant]
  6. IBUPROFEN [Concomitant]
  7. FORTEO PEN (FORTEO PEN) [Concomitant]

REACTIONS (5)
  - DIPLOPIA [None]
  - DIZZINESS [None]
  - FALL [None]
  - GAIT DISTURBANCE [None]
  - TRANSIENT ISCHAEMIC ATTACK [None]
